FAERS Safety Report 4307816-0 (Version None)
Quarter: 2004Q1

REPORT INFORMATION
  Report Type: 
  Country: None (occurrence: None)
  Receive Date: 20040226
  Receipt Date: 20030818
  Transmission Date: 20041129
  Serious: Yes (Hospitalization, Other)
  Sender: FDA-Public Use
  Company Number: 2003165615US

PATIENT
  Age: 88 Year
  Sex: Female

DRUGS (6)
  1. CELEBREX [Suspect]
     Indication: GASTROINTESTINAL HAEMORRHAGE
     Dosage: 200 MG, BID, ORAL
     Route: 048
  2. TOPROL-XL [Concomitant]
  3. SPIRONOLACTONE [Concomitant]
  4. KLOR-CON [Concomitant]
  5. PREMARIN [Concomitant]
  6. DETROL LA [Concomitant]

REACTIONS (1)
  - GASTROINTESTINAL HAEMORRHAGE [None]
